FAERS Safety Report 17890009 (Version 1)
Quarter: 2020Q2

REPORT INFORMATION
  Report Type: Spontaneous
  Country: US (occurrence: US)
  Receive Date: 20200612
  Receipt Date: 20200612
  Transmission Date: 20200714
  Serious: No
  Sender: FDA-Public Use
  Company Number: US-LUPIN PHARMACEUTICALS INC.-2020-00933

PATIENT
  Age: 91 Year
  Sex: Male
  Weight: 72.56 kg

DRUGS (2)
  1. TEMAZEPAM CAPSULES, USP, 15 MG [Suspect]
     Active Substance: TEMAZEPAM
     Indication: INSOMNIA
     Dosage: 22.5 MILLIGRAM, QD
     Route: 048
     Dates: start: 20200211, end: 20200217
  2. IMBRUVICA [Concomitant]
     Active Substance: IBRUTINIB
     Indication: CHEMOTHERAPY
     Dosage: UNK
     Route: 065

REACTIONS (2)
  - Somnolence [Unknown]
  - Sluggishness [Not Recovered/Not Resolved]

NARRATIVE: CASE EVENT DATE: 20200211
